FAERS Safety Report 7572495-6 (Version None)
Quarter: 2011Q2

REPORT INFORMATION
  Report Type: 
  Country: None (occurrence: None)
  Receive Date: 20110627
  Receipt Date: 20110617
  Transmission Date: 20111010
  Serious: Yes (Other)
  Sender: FDA-Public Use
  Company Number: NL-AMGEN-NLDSP2011031770

PATIENT
  Age: 64 Year
  Sex: Female

DRUGS (13)
  1. PAROXETINE HCL [Concomitant]
     Dosage: UNK
  2. AMLODIPINE [Concomitant]
     Dosage: UNK
  3. PREDNISONE [Concomitant]
     Dosage: UNK
  4. ENBREL [Suspect]
     Indication: RHEUMATOID ARTHRITIS
     Dosage: 50 MG, WEEKLY
     Dates: start: 20110531
  5. SPIRIVA [Concomitant]
     Dosage: UNK
  6. RABEPRAZOLE SODIUM [Concomitant]
     Dosage: UNK
  7. CALCICHEW [Concomitant]
     Dosage: UNK
  8. METOPROLOL TARTRATE [Concomitant]
     Dosage: UNK
  9. OXAZEPAM [Concomitant]
     Dosage: UNK
  10. SYMBICORT [Concomitant]
     Dosage: UNK
  11. VASELINE [Concomitant]
     Dosage: UNK
  12. PANADOL                            /00020001/ [Concomitant]
     Dosage: UNK
  13. FOLIC ACID [Concomitant]
     Dosage: UNK

REACTIONS (2)
  - ERYSIPELAS [None]
  - OPEN WOUND [None]
